FAERS Safety Report 25516192 (Version 1)
Quarter: 2025Q3

REPORT INFORMATION
  Report Type: Spontaneous
  Country: US (occurrence: US)
  Receive Date: 20250704
  Receipt Date: 20250704
  Transmission Date: 20251021
  Serious: No
  Sender: RADIUS PHARM
  Company Number: US-RADIUS HEALTH INC.-2025US001645

PATIENT
  Sex: Female

DRUGS (1)
  1. TYMLOS [Suspect]
     Active Substance: ABALOPARATIDE
     Indication: Senile osteoporosis
     Dosage: 80 MCG, QD
     Route: 058

REACTIONS (6)
  - Headache [Recovering/Resolving]
  - Decreased appetite [Unknown]
  - Pollakiuria [Unknown]
  - Nocturia [Unknown]
  - Paraesthesia [Unknown]
  - Feeling abnormal [Unknown]
